FAERS Safety Report 21340036 (Version 1)
Quarter: 2022Q3

REPORT INFORMATION
  Report Type: Spontaneous
  Country: US (occurrence: US)
  Receive Date: 20220915
  Receipt Date: 20220915
  Transmission Date: 20221027
  Serious: No
  Sender: FDA-Public Use
  Company Number: PC-31Aug2022-113398

PATIENT
  Age: 18 Year
  Sex: Female

DRUGS (1)
  1. ACCUTANE [Suspect]
     Active Substance: ISOTRETINOIN
     Indication: Hidradenitis
     Dosage: RMA ISSUE DATE: 30 MAY 2022 11:35:45 AM

REACTIONS (2)
  - Drug ineffective for unapproved indication [Unknown]
  - Product quality issue [Unknown]
